FAERS Safety Report 23622615 (Version 5)
Quarter: 2024Q3

REPORT INFORMATION
  Report Type: Report from Study
  Country: JP (occurrence: JP)
  Receive Date: 20240312
  Receipt Date: 20240705
  Transmission Date: 20241017
  Serious: Yes (Other)
  Sender: JOHNSON AND JOHNSON
  Company Number: JP-JNJFOC-20240323619

PATIENT
  Age: 35 Year
  Sex: Male

DRUGS (9)
  1. RILPIVIRINE [Suspect]
     Active Substance: RILPIVIRINE
     Indication: HIV infection
     Dosage: 900 MG, QD,RIGHT GLUTEAL MUSCLE
     Route: 030
     Dates: start: 20230303, end: 20230303
  2. RILPIVIRINE [Suspect]
     Active Substance: RILPIVIRINE
     Dosage: 900 MG, QD
     Route: 030
     Dates: start: 20230529, end: 20230529
  3. VOCABRIA [Suspect]
     Active Substance: CABOTEGRAVIR SODIUM
     Indication: HIV infection
     Dosage: 600 MG, QD,LEFT GLUTEAL MUSCLE
     Route: 030
     Dates: start: 20230303, end: 20230303
  4. VOCABRIA [Suspect]
     Active Substance: CABOTEGRAVIR SODIUM
     Indication: HIV infection
     Dosage: 600 MG, QD
     Route: 030
     Dates: start: 20230529, end: 20230529
  5. DOVATO [Suspect]
     Active Substance: DOLUTEGRAVIR SODIUM\LAMIVUDINE
     Indication: HIV infection
     Route: 048
     Dates: start: 20230726
  6. RILPIVIRINE HYDROCHLORIDE [Concomitant]
     Active Substance: RILPIVIRINE HYDROCHLORIDE
     Indication: HIV infection
     Route: 048
     Dates: start: 20230206, end: 20230303
  7. VOCABRIA [Concomitant]
     Active Substance: CABOTEGRAVIR SODIUM
     Indication: HIV infection
     Route: 048
     Dates: start: 20230206, end: 20230303
  8. XYZAL [Concomitant]
     Active Substance: LEVOCETIRIZINE DIHYDROCHLORIDE
     Indication: Seasonal allergy
     Dosage: DOSE UNKNOWN
     Route: 048
     Dates: start: 20230206, end: 20230505
  9. FLUTICASONE FUROATE [Concomitant]
     Active Substance: FLUTICASONE FUROATE
     Indication: Seasonal allergy
     Dosage: DOSE UNKNOWN
     Route: 045
     Dates: start: 20230206, end: 20230505

REACTIONS (6)
  - Monkeypox [Recovered/Resolved]
  - Gastroenteritis [Recovering/Resolving]
  - Urticaria [Recovering/Resolving]
  - Injection site pain [Recovered/Resolved]
  - Product use issue [Unknown]
  - Off label use [Unknown]

NARRATIVE: CASE EVENT DATE: 20230303
